FAERS Safety Report 5008276-7 (Version None)
Quarter: 2006Q2

REPORT INFORMATION
  Report Type: 
  Country: None (occurrence: None)
  Receive Date: 20060523
  Receipt Date: 20050922
  Transmission Date: 20061013
  Serious: Yes (Hospitalization)
  Sender: FDA-Public Use
  Company Number: US-GLAXOSMITHKLINE-A0575457A

PATIENT
  Age: 53 Year
  Sex: Male

DRUGS (7)
  1. FLOLAN [Suspect]
     Dosage: 10NG CONTINUOUS
     Route: 042
     Dates: start: 20050921
  2. LASIX [Concomitant]
  3. FLONASE [Concomitant]
  4. PROTONIX [Concomitant]
  5. VIAGRA [Concomitant]
  6. INSULIN [Concomitant]
  7. ATIVAN [Concomitant]

REACTIONS (1)
  - THROMBOCYTOPENIA [None]
